FAERS Safety Report 24634969 (Version 1)
Quarter: 2024Q4

REPORT INFORMATION
  Report Type: Spontaneous
  Country: AT (occurrence: AT)
  Receive Date: 20241119
  Receipt Date: 20241119
  Transmission Date: 20250115
  Serious: Yes (Other)
  Sender: TEVA
  Company Number: AT-TEVA-VS-3265051

PATIENT
  Sex: Female

DRUGS (1)
  1. AJOVY [Suspect]
     Active Substance: FREMANEZUMAB-VFRM
     Indication: Product used for unknown indication
     Route: 065

REACTIONS (4)
  - Arthritis [Unknown]
  - Nervous system disorder [Unknown]
  - Arthralgia [Unknown]
  - Effusion [Unknown]
